FAERS Safety Report 8303216 (Version 6)
Quarter: 2013Q4

REPORT INFORMATION
  Report Type: Spontaneous
  Country: US (occurrence: US)
  Receive Date: 20111220
  Receipt Date: 20131025
  Transmission Date: 20140711
  Serious: Yes (Other)
  Sender: FDA-Public Use
  Company Number: US-ROCHE-793016

PATIENT
  Age: 17 Year
  Sex: Female
  Weight: 38.59 kg

DRUGS (5)
  1. ACCUTANE [Suspect]
     Indication: ACNE
     Route: 065
     Dates: start: 19950101, end: 19951231
  2. ACCUTANE [Suspect]
     Route: 065
     Dates: start: 20000101, end: 20001231
  3. OVCON [Concomitant]
     Indication: ORAL CONTRACEPTION
  4. ZOLOFT [Concomitant]
     Indication: DEPRESSION
  5. DEXEDRINE [Concomitant]

REACTIONS (10)
  - Colitis ulcerative [Unknown]
  - Crohn^s disease [Unknown]
  - Inflammatory bowel disease [Unknown]
  - Nephrolithiasis [Unknown]
  - Osteoporosis [Unknown]
  - Depression [Unknown]
  - Intestinal haemorrhage [Unknown]
  - Intestinal obstruction [Unknown]
  - Irritable bowel syndrome [Unknown]
  - Arthralgia [Unknown]
